FAERS Safety Report 6612503-X (Version None)
Quarter: 2010Q1

REPORT INFORMATION
  Report Type: 
  Country: None (occurrence: None)
  Receive Date: 20100223
  Receipt Date: 20100211
  Transmission Date: 20100710
  Serious: Yes (Hospitalization)
  Sender: FDA-Public Use
  Company Number: 2010000944

PATIENT
  Age: 57 Year
  Sex: Male
  Weight: 68 kg

DRUGS (4)
  1. TREANDA [Suspect]
     Indication: CHRONIC LYMPHOCYTIC LEUKAEMIA
     Dosage: (170 MG, CYCLICAL) INTRAVENOUS
     Route: 042
     Dates: start: 20091124, end: 20100119
  2. RITUXIMAB (RITUXIMAB) (1000 MILLIGRAM) [Suspect]
     Indication: CHRONIC LYMPHOCYTIC LEUKAEMIA
     Dosage: (1000 MG, CYCLICAL)
     Dates: start: 20091123, end: 20100118
  3. LEVOCETIRIZINE (LEVOCETERIZINE) [Concomitant]
  4. HALOMETASONE MONOHYDRATE (HALOMETASONE MONOHYDRATE) [Concomitant]

REACTIONS (10)
  - BACTERIAL TEST POSITIVE [None]
  - C-REACTIVE PROTEIN INCREASED [None]
  - CHILLS [None]
  - DYSPNOEA [None]
  - ESCHERICHIA INFECTION [None]
  - INFECTION [None]
  - PROSTATITIS [None]
  - PYREXIA [None]
  - UROSEPSIS [None]
  - WHITE BLOOD CELL COUNT INCREASED [None]
